FAERS Safety Report 6460855-6 (Version None)
Quarter: 2009Q4

REPORT INFORMATION
  Report Type: 
  Country: None (occurrence: None)
  Receive Date: 20091130
  Receipt Date: 20091120
  Transmission Date: 20100525
  Serious: Yes (Death)
  Sender: FDA-Public Use
  Company Number: JP-PFIZER INC-2009292849

PATIENT
  Age: 60 Year
  Sex: Male
  Weight: 53.5 kg

DRUGS (5)
  1. SUNITINIB MALATE [Suspect]
     Indication: RENAL CELL CARCINOMA
     Dosage: 37.5 MG, 1X/DAY
     Route: 048
     Dates: start: 20091007, end: 20091021
  2. DECADRON [Concomitant]
     Dosage: UNK
     Route: 048
     Dates: start: 20081101
  3. GASTER [Concomitant]
     Dosage: UNK
     Route: 048
     Dates: start: 20081101
  4. NOVAMIN [Concomitant]
     Dosage: UNK
     Route: 048
     Dates: start: 20090122
  5. OXYCONTIN [Concomitant]
     Dosage: UNK
     Route: 048
     Dates: start: 20090108

REACTIONS (1)
  - DEATH [None]
